FAERS Safety Report 9264492 (Version 1)
Quarter: 2013Q2

REPORT INFORMATION
  Report Type: Spontaneous
  Country: DE (occurrence: DE)
  Receive Date: 20130501
  Receipt Date: 20130501
  Transmission Date: 20140414
  Serious: Yes (Other)
  Sender: FDA-Public Use
  Company Number: GXKR2013DE001629

PATIENT
  Age: 88 Year
  Sex: Female

DRUGS (1)
  1. ASS 1A PHARMA [Suspect]
     Dosage: 100 MG, UNK
     Route: 048

REACTIONS (2)
  - Vision blurred [Unknown]
  - Eye disorder [None]
